FAERS Safety Report 6091123-2 (Version None)
Quarter: 2009Q1

REPORT INFORMATION
  Report Type: 
  Country: None (occurrence: None)
  Receive Date: 20090219
  Receipt Date: 20090219
  Transmission Date: 20090719
  Serious: Yes (Other)
  Sender: FDA-Public Use
  Company Number: None

PATIENT

DRUGS (1)
  1. GABAPENTIN [Suspect]

REACTIONS (3)
  - BALANCE DISORDER [None]
  - DIZZINESS [None]
  - PRODUCT QUALITY ISSUE [None]
